FAERS Safety Report 13164817 (Version 1)
Quarter: 2017Q1

REPORT INFORMATION
  Report Type: Spontaneous
  Country: US (occurrence: US)
  Receive Date: 20170130
  Receipt Date: 20170130
  Transmission Date: 20170428
  Serious: Yes (Other)
  Sender: FDA-Public Use
  Company Number: US-PFIZER INC-2017036222

PATIENT
  Age: 43 Year
  Sex: Male

DRUGS (3)
  1. BEVACIZUMAB [Suspect]
     Active Substance: BEVACIZUMAB
  2. PEMETREXED [Suspect]
     Active Substance: PEMETREXED
     Dosage: UNK
  3. CARBOPLATIN. [Suspect]
     Active Substance: CARBOPLATIN
     Dosage: UNK

REACTIONS (1)
  - Lymphangitis [Unknown]
